FAERS Safety Report 6673246-X (Version None)
Quarter: 2010Q2

REPORT INFORMATION
  Report Type: 
  Country: None (occurrence: None)
  Receive Date: 20100408
  Receipt Date: 20100331
  Transmission Date: 20101027
  Serious: Yes (Hospitalization, Other)
  Sender: FDA-Public Use
  Company Number: FI-PFIZER INC-2010031989

PATIENT
  Age: 73 Year
  Sex: Female

DRUGS (6)
  1. SIMVASTATIN [Suspect]
     Dosage: 20 MG, UNK
     Route: 048
     Dates: start: 20091103, end: 20100303
  2. BISOPROLOL ^RATIOPHARM^ [Concomitant]
     Indication: HYPERTONIA
     Dosage: 5 MG, UNK
     Route: 048
     Dates: start: 20090101
  3. COZAAR [Concomitant]
     Indication: HYPERTONIA
     Dosage: 100MG/12.5MG
     Route: 048
     Dates: start: 20090101
  4. PRIMASPAN [Concomitant]
     Indication: CARDIOVASCULAR DISORDER
     Dosage: 100 MG, UNK
     Route: 048
     Dates: start: 20090101
  5. AVANDAMET [Concomitant]
     Indication: DIABETES MELLITUS
     Dosage: 2MG/1000MG
     Route: 048
     Dates: start: 20090101
  6. BUVENTOL EASYHALER [Concomitant]
     Indication: ASTHMA
     Dosage: 200 UG, UNK
     Route: 055
     Dates: start: 20090101

REACTIONS (2)
  - TENDON RUPTURE [None]
  - TENDONITIS [None]
